FAERS Safety Report 19942208 (Version 1)
Quarter: 2021Q4

REPORT INFORMATION
  Report Type: Spontaneous
  Country: US (occurrence: US)
  Receive Date: 20211008
  Receipt Date: 20211008
  Transmission Date: 20220304
  Serious: Yes (Hospitalization)
  Sender: FDA-Public Use
  Company Number: None

PATIENT
  Sex: Female

DRUGS (2)
  1. HUMIRA [Suspect]
     Active Substance: ADALIMUMAB
     Indication: Rheumatoid arthritis
     Dosage: ?          OTHER FREQUENCY:EVERY OTHER WEEK;
     Route: 058
     Dates: start: 20190117
  2. BACTRIM DS [Concomitant]
     Active Substance: SULFAMETHOXAZOLE\TRIMETHOPRIM

REACTIONS (10)
  - Excessive granulation tissue [None]
  - Impaired healing [None]
  - Impaired healing [None]
  - Uterine prolapse [None]
  - Confusional state [None]
  - Intellectual disability [None]
  - Bladder cancer [None]
  - Bladder prolapse [None]
  - Rectal prolapse [None]
  - Vaginal prolapse [None]
